FAERS Safety Report 9749686 (Version 2)
Quarter: 2014Q1

REPORT INFORMATION
  Report Type: Spontaneous
  Country: TR (occurrence: TR)
  Receive Date: 20131212
  Receipt Date: 20140110
  Transmission Date: 20141002
  Serious: Yes (Hospitalization)
  Sender: FDA-Public Use
  Company Number: TR-BAYER-2013-149182

PATIENT
  Age: 69 Year
  Sex: Male
  Weight: 70 kg

DRUGS (2)
  1. ASPIRIN [Suspect]
     Indication: CARDIAC FAILURE
     Dosage: 75 MG, QD
  2. COUMADIN [Interacting]
     Dosage: 5 MG, QD

REACTIONS (2)
  - Arrhythmia [None]
  - Aortic valve replacement [None]
